FAERS Safety Report 6151928-6 (Version None)
Quarter: 2009Q2

REPORT INFORMATION
  Report Type: 
  Country: None (occurrence: None)
  Receive Date: 20090410
  Receipt Date: 20090406
  Transmission Date: 20091009
  Serious: Yes (Death, Hospitalization)
  Sender: FDA-Public Use
  Company Number: DE-CELGENEUS-062-21880-09040452

PATIENT
  Sex: Female

DRUGS (4)
  1. REVLIMID [Suspect]
     Indication: DRUG USE FOR UNKNOWN INDICATION
     Route: 048
  2. REVLIMID [Suspect]
     Route: 048
     Dates: start: 20090205
  3. REVLIMID [Suspect]
     Route: 048
     Dates: start: 20090211
  4. REVLIMID [Suspect]
     Route: 048
     Dates: start: 20090302

REACTIONS (1)
  - DEATH [None]
